FAERS Safety Report 15434996 (Version 1)
Quarter: 2018Q3

REPORT INFORMATION
  Report Type: Spontaneous
  Country: US (occurrence: US)
  Receive Date: 20180924
  Receipt Date: 20180924
  Transmission Date: 20181010
  Serious: Yes (Death, Hospitalization)
  Sender: FDA-Public Use
  Company Number: None

PATIENT
  Age: 64 Year
  Sex: Male
  Weight: 81 kg

DRUGS (1)
  1. ISOVUE 300 [Suspect]
     Active Substance: IOPAMIDOL
     Indication: SCAN WITH CONTRAST
     Dosage: ?          OTHER FREQUENCY:ONE TIME USE;?
     Route: 040
     Dates: start: 20180910, end: 20180910

REACTIONS (5)
  - Headache [None]
  - Contrast media reaction [None]
  - Vomiting [None]
  - Cardiac disorder [None]
  - Cough [None]

NARRATIVE: CASE EVENT DATE: 20180910
